FAERS Safety Report 8604860-X (Version None)
Quarter: 2012Q3

REPORT INFORMATION
  Report Type: 
  Country: None (occurrence: None)
  Receive Date: 20120807
  Receipt Date: 20120725
  Transmission Date: 20120928
  Serious: Yes (Other)
  Sender: FDA-Public Use
  Company Number: AUR-APL-2012-03278

PATIENT
  Age: 47 Year
  Sex: Female
  Weight: 90.25 kg

DRUGS (4)
  1. LAMOTRIGINE [Suspect]
     Indication: PRODUCT USED FOR UNKNOWN INDICATION
  2. ABILIFY [Suspect]
     Indication: PRODUCT USED FOR UNKNOWN INDICATION
  3. PRISTIQ [Suspect]
     Indication: BIPOLAR DISORDER
     Dosage: DAILY, ORAL
     Route: 048
     Dates: start: 20120413, end: 20120613
  4. XANAX [Suspect]
     Indication: PRODUCT USED FOR UNKNOWN INDICATION
     Dosage: HALF TABLET OF UNKNOWN DOSE

REACTIONS (8)
  - DRUG EFFECT DECREASED [None]
  - DEPRESSED MOOD [None]
  - IRRITABILITY [None]
  - WEIGHT DECREASED [None]
  - RECTAL HAEMORRHAGE [None]
  - MEDICATION RESIDUE [None]
  - PANIC ATTACK [None]
  - HAEMORRHOIDS [None]
